FAERS Safety Report 6439656-0 (Version None)
Quarter: 2009Q4

REPORT INFORMATION
  Report Type: 
  Country: None (occurrence: None)
  Receive Date: 20091113
  Receipt Date: 20091104
  Transmission Date: 20100525
  Serious: Yes (Hospitalization, Other)
  Sender: FDA-Public Use
  Company Number: US-AMGEN-QUU372997

PATIENT
  Sex: Female

DRUGS (5)
  1. ENBREL [Suspect]
     Indication: RHEUMATOID ARTHRITIS
  2. HUMIRA [Suspect]
     Indication: RHEUMATOID ARTHRITIS
     Route: 058
     Dates: start: 20060101, end: 20070101
  3. PACLITAXEL [Suspect]
     Indication: BREAST CANCER
     Dates: start: 20090401
  4. PREDNISONE [Concomitant]
  5. PENICILLIN NOS [Concomitant]

REACTIONS (24)
  - BASAL CELL CARCINOMA [None]
  - BREAST CANCER [None]
  - C-REACTIVE PROTEIN INCREASED [None]
  - DIARRHOEA [None]
  - DIARRHOEA HAEMORRHAGIC [None]
  - DRUG INEFFECTIVE [None]
  - DYSPNOEA [None]
  - HAEMORRHOIDS [None]
  - HALLUCINATION [None]
  - HYPERSENSITIVITY [None]
  - HYPOAESTHESIA [None]
  - LUPUS-LIKE SYNDROME [None]
  - MOBILITY DECREASED [None]
  - MUSCULOSKELETAL STIFFNESS [None]
  - PAIN [None]
  - PARAESTHESIA [None]
  - PRURITUS [None]
  - PULMONARY HYPERTENSION [None]
  - RASH [None]
  - RED BLOOD CELL SEDIMENTATION RATE INCREASED [None]
  - SKIN DISCOLOURATION [None]
  - SQUAMOUS CELL CARCINOMA [None]
  - SWELLING [None]
  - URTICARIA [None]
